FAERS Safety Report 25747809 (Version 1)
Quarter: 2025Q3

REPORT INFORMATION
  Report Type: Spontaneous
  Country: US (occurrence: US)
  Receive Date: 20250901
  Receipt Date: 20250901
  Transmission Date: 20251020
  Serious: No
  Sender: DR REDDYS
  Company Number: US-DRL-USA-USA/2025/08/012774

PATIENT
  Age: 87 Year
  Sex: Female
  Weight: 58.967 kg

DRUGS (3)
  1. IBANDRONATE SODIUM [Suspect]
     Active Substance: IBANDRONATE SODIUM
     Indication: Blood calcium decreased
     Dosage: SERIAL NUMBER: A1RWN0VGS63U
     Route: 048
     Dates: start: 20250814
  2. Calcium 12000 D4 5000IU [Concomitant]
     Indication: Product used for unknown indication
     Route: 065
  3. LORAZEPAM [Concomitant]
     Active Substance: LORAZEPAM
     Indication: Nervous system disorder
     Route: 065

REACTIONS (2)
  - Tremor [Not Recovered/Not Resolved]
  - Pain [Not Recovered/Not Resolved]

NARRATIVE: CASE EVENT DATE: 20250815
